FAERS Safety Report 10490222 (Version 3)
Quarter: 2014Q4

REPORT INFORMATION
  Report Type: Spontaneous
  Country: DE (occurrence: DE)
  Receive Date: 20141002
  Receipt Date: 20141008
  Transmission Date: 20150528
  Serious: Yes (Other)
  Sender: FDA-Public Use
  Company Number: DE-PFIZER INC-2014166454

PATIENT
  Age: 7 Year
  Sex: Male
  Weight: 33.6 kg

DRUGS (2)
  1. GENOTROPIN [Suspect]
     Active Substance: SOMATROPIN
     Indication: GROWTH HORMONE DEFICIENCY
     Dosage: 0.75 MG, 1X/DAY
     Route: 058
     Dates: start: 200909, end: 201405
  2. GENOTROPIN [Suspect]
     Active Substance: SOMATROPIN
     Indication: GROWTH HORMONE DEFICIENCY
     Dosage: 0.8 MG, 1X/DAY
     Route: 058
     Dates: start: 201405, end: 201409

REACTIONS (12)
  - Impetigo [Unknown]
  - Faecal calprotectin increased [Unknown]
  - Hypersensitivity [Unknown]
  - Haematochezia [Recovered/Resolved]
  - Abdominal pain [Recovered/Resolved]
  - Constipation [Unknown]
  - Headache [Unknown]
  - Drug eruption [Unknown]
  - Rash pustular [Unknown]
  - Flatulence [Unknown]
  - Arthralgia [Unknown]
  - Drug ineffective [Unknown]

NARRATIVE: CASE EVENT DATE: 20140211
